FAERS Safety Report 6738007-1 (Version None)
Quarter: 2010Q2

REPORT INFORMATION
  Report Type: 
  Country: None (occurrence: None)
  Receive Date: 20100520
  Receipt Date: 20100505
  Transmission Date: 20101027
  Serious: Yes (Hospitalization, Other)
  Sender: FDA-Public Use
  Company Number: 2010001497

PATIENT
  Age: 86 Year
  Sex: Male

DRUGS (14)
  1. ERLOTINIB (ERLOTINIB) (TABLET) (ERLOTINIB) [Suspect]
     Indication: NON-SMALL CELL LUNG CANCER
     Dosage: ORAL
     Route: 048
  2. AMLODIPINE [Concomitant]
  3. TEMAZEPAM [Concomitant]
  4. PROPAFENONE HCL [Concomitant]
  5. CITALOPRAM HYDROBROMIDE [Concomitant]
  6. FORMOTEROL (FORMOTEROL) [Concomitant]
  7. FINASTERIDE [Concomitant]
  8. METOPROLOL (METOPROLOL) [Concomitant]
  9. POTASSIUM (POTASSIUM) [Concomitant]
  10. ALBUTEROL [Concomitant]
  11. MOMETASONE FUROATE [Concomitant]
  12. LISINOPRIL [Concomitant]
  13. LOVASTATIN [Concomitant]
  14. TERAZOSIN HCL [Concomitant]

REACTIONS (4)
  - CONSTIPATION [None]
  - COUGH [None]
  - DYSPHAGIA [None]
  - OESOPHAGEAL STENOSIS [None]
